FAERS Safety Report 5444932-4 (Version None)
Quarter: 2007Q3

REPORT INFORMATION
  Report Type: 
  Country: None (occurrence: None)
  Receive Date: 20070906
  Receipt Date: 20070831
  Transmission Date: 20080115
  Serious: Yes (Hospitalization)
  Sender: FDA-Public Use
  Company Number: B0485910A

PATIENT
  Age: 10 Year
  Sex: Male

DRUGS (1)
  1. AMOXICILLIN [Suspect]
     Route: 048
     Dates: start: 20050601

REACTIONS (4)
  - ERYTHEMA [None]
  - LOCALISED OEDEMA [None]
  - RASH [None]
  - SKIN EXFOLIATION [None]
